FAERS Safety Report 9305484 (Version 2)
Quarter: 2013Q3

REPORT INFORMATION
  Report Type: Report from Study
  Country: US (occurrence: US)
  Receive Date: 20130523
  Receipt Date: 20130905
  Transmission Date: 20140515
  Serious: Yes (Death, Disabling, Other)
  Sender: FDA-Public Use
  Company Number: US-BAYER-2013-005531

PATIENT
  Age: 65 Year
  Sex: Female

DRUGS (1)
  1. STIVARGA [Suspect]
     Indication: COLON CANCER
     Dosage: 160 MG, QD
     Route: 048
     Dates: start: 20121219, end: 20121230

REACTIONS (3)
  - Colon cancer [Fatal]
  - Bedridden [Not Recovered/Not Resolved]
  - Fatigue [None]
